FAERS Safety Report 7678097-5 (Version None)
Quarter: 2011Q3

REPORT INFORMATION
  Report Type: 
  Country: None (occurrence: None)
  Receive Date: 20110811
  Receipt Date: 20110801
  Transmission Date: 20111222
  Serious: Yes (Hospitalization, Other)
  Sender: FDA-Public Use
  Company Number: US-JNJFOC-20060405992

PATIENT
  Sex: Male
  Weight: 33.4 kg

DRUGS (7)
  1. MESALAMINE [Concomitant]
     Route: 048
  2. COUMADIN [Concomitant]
  3. INFLIXIMAB [Suspect]
     Indication: CROHN'S DISEASE
     Dates: start: 20060725
  4. RIFAXIMIN [Concomitant]
  5. INFLIXIMAB [Suspect]
     Dates: start: 20041209
  6. INFLIXIMAB [Suspect]
     Dosage: 5 MG/KG:  TOTAL 11 DOSES
     Dates: start: 20060202, end: 20060202
  7. INFLIXIMAB [Suspect]
     Dosage: TOTAL 12 DOSES
     Dates: start: 20060323

REACTIONS (3)
  - CROHN'S DISEASE [None]
  - FISTULA [None]
  - ILEAL PERFORATION [None]
